FAERS Safety Report 8890147 (Version 1)
Quarter: 2012Q4

REPORT INFORMATION
  Report Type: Spontaneous
  Country: US (occurrence: None)
  Receive Date: 20121105
  Receipt Date: 20121105
  Transmission Date: 20130627
  Serious: Yes (Other)
  Sender: FDA-Public Use
  Company Number: None

PATIENT
  Age: 49 Year
  Sex: Female
  Weight: 57.3 kg

DRUGS (15)
  1. HERCEPTIN [Suspect]
     Route: 042
     Dates: start: 20111228, end: 20120305
  2. HERCEPTIN [Suspect]
     Route: 042
     Dates: start: 20111228, end: 20120305
  3. HERCEPTIN [Suspect]
     Route: 042
  4. HERCEPTIN [Suspect]
     Route: 042
  5. HERCEPTIN [Suspect]
     Dates: start: 20120312, end: 20120907
  6. HERCEPTIN [Suspect]
     Dates: start: 20120312, end: 20120907
  7. PEGFILGRASTIM [Concomitant]
  8. TAMOXIFEN [Concomitant]
  9. ALPRAZOLAM [Concomitant]
  10. CALCIUM PLUS [Concomitant]
  11. VITAMIN D [Concomitant]
  12. MULTIVITAMIN [Concomitant]
  13. DOXORUBICIN [Concomitant]
  14. CYCLOPHOSPHAMIDE [Concomitant]
  15. PACLITAXEL [Concomitant]

REACTIONS (1)
  - Ejection fraction decreased [None]
